FAERS Safety Report 12319483 (Version 1)
Quarter: 2016Q2

REPORT INFORMATION
  Report Type: Spontaneous
  Country: US (occurrence: US)
  Receive Date: 20160429
  Receipt Date: 20160429
  Transmission Date: 20160815
  Serious: No
  Sender: FDA-Public Use
  Company Number: US-ROCHE-1634190

PATIENT
  Sex: Male
  Weight: 90.8 kg

DRUGS (3)
  1. ESBRIET [Suspect]
     Active Substance: PIRFENIDONE
     Indication: IDIOPATHIC PULMONARY FIBROSIS
     Dosage: 1602MG DAILY, 3 CAPS
     Route: 048
     Dates: start: 20150421
  2. ESBRIET [Suspect]
     Active Substance: PIRFENIDONE
     Dosage: 3 CAPSULES 3 TIMES DAILY, TOTAL- 2403 MG DAILY
     Route: 048
     Dates: start: 20150421
  3. ESBRIET [Suspect]
     Active Substance: PIRFENIDONE
     Dosage: GRADUALLY INCREASING AND CURRENTLY TAKING IT 2 TIMES A DAY
     Route: 048

REACTIONS (2)
  - Abdominal pain upper [Recovered/Resolved]
  - Pain in extremity [Unknown]
